FAERS Safety Report 7830853-6 (Version None)
Quarter: 2011Q4

REPORT INFORMATION
  Report Type: 
  Country: None (occurrence: None)
  Receive Date: 20111021
  Receipt Date: 20111013
  Transmission Date: 20120403
  Serious: Yes (Disabling)
  Sender: FDA-Public Use
  Company Number: DK-PFIZER INC-2011226368

PATIENT
  Sex: Male

DRUGS (1)
  1. ZOLOFT [Suspect]
     Indication: DEPRESSION
     Dosage: 50 MG DAILY
     Route: 064

REACTIONS (4)
  - DYSMORPHISM [None]
  - LIP DISORDER [None]
  - MATERNAL EXPOSURE DURING PREGNANCY [None]
  - SPEECH DISORDER DEVELOPMENTAL [None]
